FAERS Safety Report 16218682 (Version 1)
Quarter: 2019Q2

REPORT INFORMATION
  Report Type: Spontaneous
  Country: GB (occurrence: GB)
  Receive Date: 20190419
  Receipt Date: 20190419
  Transmission Date: 20190711
  Serious: Yes (Other)
  Sender: FDA-Public Use
  Company Number: GB-TEVA-2019-GB-1037743

PATIENT
  Age: 62 Year
  Sex: Male
  Weight: 82.6 kg

DRUGS (12)
  1. METHOTREXATE. [Suspect]
     Active Substance: METHOTREXATE
     Route: 065
  2. NICORANDIL [Concomitant]
     Active Substance: NICORANDIL
  3. BISOPROLOL FUMARATE. [Concomitant]
     Active Substance: BISOPROLOL FUMARATE
  4. MONOMIL XL [Concomitant]
     Active Substance: ISOSORBIDE MONONITRATE
  5. CLOPIDOGREL [Concomitant]
     Active Substance: CLOPIDOGREL BISULFATE
  6. RAMIPRIL. [Concomitant]
     Active Substance: RAMIPRIL
  7. FOLIC ACID. [Concomitant]
     Active Substance: FOLIC ACID
  8. METFORMIN HYDROCHLORIDE. [Concomitant]
     Active Substance: METFORMIN HYDROCHLORIDE
  9. TOCILIZUMAB. [Concomitant]
     Active Substance: TOCILIZUMAB
  10. MALARONE [Interacting]
     Active Substance: ATOVAQUONE\PROGUANIL HYDROCHLORIDE
     Indication: MALARIA PROPHYLAXIS
     Dosage: 250/100MG
     Route: 048
     Dates: start: 20190120, end: 20190218
  11. ACETYLSALICYLIC ACID [Concomitant]
     Active Substance: ASPIRIN
  12. PRAVASTATIN SODIUM. [Concomitant]
     Active Substance: PRAVASTATIN SODIUM

REACTIONS (2)
  - Alanine aminotransferase increased [Recovering/Resolving]
  - Drug interaction [Unknown]

NARRATIVE: CASE EVENT DATE: 20190228
